FAERS Safety Report 15525840 (Version 1)
Quarter: 2018Q4

REPORT INFORMATION
  Report Type: Spontaneous
  Country: FR (occurrence: FR)
  Receive Date: 20181018
  Receipt Date: 20181018
  Transmission Date: 20190205
  Serious: Yes (Other)
  Sender: FDA-Public Use
  Company Number: FR-LPDUSPRD-20181900

PATIENT
  Age: 24 Year
  Sex: Male
  Weight: 64 kg

DRUGS (1)
  1. FERINJECT [Suspect]
     Active Substance: FERRIC CARBOXYMALTOSE
     Dosage: 1 GM,1 TOTAL
     Route: 042
     Dates: start: 20180827, end: 20180827

REACTIONS (3)
  - Contraindicated product administered [Unknown]
  - Angioedema [Unknown]
  - Lip oedema [Unknown]

NARRATIVE: CASE EVENT DATE: 20180827
